FAERS Safety Report 10880750 (Version 3)
Quarter: 2015Q2

REPORT INFORMATION
  Report Type: Report from Study
  Country: US (occurrence: US)
  Receive Date: 20150303
  Receipt Date: 20150504
  Transmission Date: 20150821
  Serious: Yes (Other)
  Sender: FDA-Public Use
  Company Number: US-BIOGENIDEC-2015BI023639

PATIENT
  Age: 65 Year
  Sex: Female
  Weight: 112 kg

DRUGS (25)
  1. AVONEX [Suspect]
     Active Substance: INTERFERON BETA-1A
     Indication: MULTIPLE SCLEROSIS
     Route: 030
     Dates: start: 20110510
  2. MORPHINE [Concomitant]
     Active Substance: MORPHINE
  3. VITAMIN D [Concomitant]
     Active Substance: CHOLECALCIFEROL
  4. VITAMIN B12 [Concomitant]
     Active Substance: CYANOCOBALAMIN
     Route: 048
  5. COENZYME Q10 [Concomitant]
     Active Substance: UBIDECARENONE
  6. OMNICEF [Concomitant]
     Active Substance: CEFDINIR
  7. BACLOFEN. [Concomitant]
     Active Substance: BACLOFEN
  8. KRILL OIL [Concomitant]
     Active Substance: DIETARY SUPPLEMENT
  9. PYRIDIUM [Concomitant]
     Active Substance: PHENAZOPYRIDINE
  10. PROBIOTIC [Concomitant]
     Active Substance: PROBIOTICS NOS
  11. GINKO BILOBA [Concomitant]
     Active Substance: GINKGO
  12. BIOTIN [Concomitant]
     Active Substance: BIOTIN
  13. OMEGA 3 [Concomitant]
     Active Substance: OMEGA-3 FATTY ACIDS
  14. MULTIVITAMINS [Concomitant]
     Active Substance: VITAMINS
  15. MAGNESIUM [Concomitant]
     Active Substance: MAGNESIUM
  16. ZOFRAN [Concomitant]
     Active Substance: ONDANSETRON HYDROCHLORIDE
  17. DOCUSATE [Concomitant]
     Active Substance: DOCUSATE
  18. FERROUS SULFATE [Concomitant]
     Active Substance: FERROUS SULFATE\FERROUS SULFATE, DRIED
  19. TIGECYCLINE [Concomitant]
     Active Substance: TIGECYCLINE
     Route: 042
  20. AVONEX [Suspect]
     Active Substance: INTERFERON BETA-1A
     Indication: MULTIPLE SCLEROSIS
     Route: 030
     Dates: start: 20030805
  21. VITAMIN E [Concomitant]
     Active Substance: .ALPHA.-TOCOPHEROL
  22. ASCORBIC ACID. [Concomitant]
     Active Substance: ASCORBIC ACID
  23. VITAMIN B [Concomitant]
     Active Substance: VITAMIN B
  24. OXYCODONE [Concomitant]
     Active Substance: OXYCODONE
  25. LOVENOX [Concomitant]
     Active Substance: ENOXAPARIN SODIUM

REACTIONS (5)
  - Squamous cell carcinoma [Unknown]
  - Biopsy liver [Unknown]
  - Malignant melanoma [Unknown]
  - Gastrectomy [Unknown]
  - Multiple sclerosis relapse [Recovered/Resolved]

NARRATIVE: CASE EVENT DATE: 20140813
